FAERS Safety Report 5698880-5 (Version None)
Quarter: 2008Q2

REPORT INFORMATION
  Report Type: 
  Country: None (occurrence: None)
  Receive Date: 20080408
  Receipt Date: 20060721
  Transmission Date: 20081010
  Serious: No
  Sender: FDA-Public Use
  Company Number: US-BAYER-US-2006-020182

PATIENT
  Age: 65 Year
  Sex: Male
  Weight: 88 kg

DRUGS (9)
  1. ULTRAVIST (PHARMACY BULK) [Suspect]
     Indication: COMPUTERISED TOMOGRAM ABDOMEN
     Dosage: UNIT DOSE: 100 ML
     Route: 042
     Dates: start: 20060721, end: 20060721
  2. GLUCOPHAGE [Concomitant]
  3. ADVAIR HFA [Concomitant]
  4. NEXIUM [Concomitant]
  5. LIPITOR [Concomitant]
  6. TRAZODONE HCL [Concomitant]
  7. SPIRIVA [Concomitant]
  8. ALBUTEROL [Concomitant]
  9. CONTRAST MEDIA [Concomitant]
     Route: 048
     Dates: start: 20060721, end: 20060721

REACTIONS (2)
  - PRURITUS [None]
  - URTICARIA [None]
